FAERS Safety Report 14203271 (Version 1)
Quarter: 2017Q4

REPORT INFORMATION
  Report Type: Spontaneous
  Country: US (occurrence: US)
  Receive Date: 20171120
  Receipt Date: 20171120
  Transmission Date: 20180321
  Serious: Yes (Life-Threatening, Other)
  Sender: FDA-Public Use
  Company Number: US-ORION CORPORATION ORION PHARMA-PROP2017-0004

PATIENT
  Age: 3 Year
  Sex: Male

DRUGS (1)
  1. PROPAFENONE. [Suspect]
     Active Substance: PROPAFENONE
     Route: 048

REACTIONS (7)
  - Cardiac arrest [Recovered/Resolved]
  - Overdose [Unknown]
  - Hypotension [Recovered/Resolved]
  - Drug administered to patient of inappropriate age [Unknown]
  - Seizure [Recovered/Resolved]
  - Arrhythmia [Recovered/Resolved]
  - Bradycardia [Recovered/Resolved]
